FAERS Safety Report 14772968 (Version 1)
Quarter: 2018Q2

REPORT INFORMATION
  Report Type: Spontaneous
  Country: FR (occurrence: FR)
  Receive Date: 20180418
  Receipt Date: 20180418
  Transmission Date: 20180711
  Serious: Yes (Other)
  Sender: FDA-Public Use
  Company Number: FR-MERCK KGAA-2045919

PATIENT
  Age: 43 Year
  Sex: Female

DRUGS (1)
  1. NOVOTHYROX [Suspect]
     Active Substance: LEVOTHYROXINE SODIUM
     Indication: PRODUCT USED FOR UNKNOWN INDICATION

REACTIONS (25)
  - Pain in extremity [None]
  - Mean cell haemoglobin concentration decreased [None]
  - Asthenia [None]
  - Fatigue [None]
  - Crying [None]
  - Nausea [None]
  - Palpitations [None]
  - Tachycardia [None]
  - Sleep disorder [None]
  - Dry eye [None]
  - C-reactive protein increased [None]
  - Alopecia [None]
  - Dizziness [None]
  - Decreased interest [None]
  - Muscle spasms [None]
  - Blood pressure increased [None]
  - Dyspnoea at rest [None]
  - Nodule [None]
  - Depression [None]
  - Weight increased [None]
  - Vision blurred [None]
  - Platelet count increased [None]
  - Headache [None]
  - Disturbance in attention [None]
  - Hypokinesia [None]

NARRATIVE: CASE EVENT DATE: 201705
